FAERS Safety Report 9886491 (Version 2)
Quarter: 2014Q2

REPORT INFORMATION
  Report Type: Spontaneous
  Country: US (occurrence: US)
  Receive Date: 20140210
  Receipt Date: 20140408
  Transmission Date: 20141212
  Serious: Yes (Hospitalization)
  Sender: FDA-Public Use
  Company Number: US-INCYTE CORPORATION-2014IN000293

PATIENT
  Age: 67 Year
  Sex: Male

DRUGS (22)
  1. JAKAFI [Suspect]
     Indication: MYELOFIBROSIS
     Dosage: 15 MG, BID
     Route: 048
     Dates: start: 20130131
  2. JAKAFI [Suspect]
     Dosage: 15 MG, BID
     Route: 048
     Dates: start: 20130827
  3. CITALOPRAM [Concomitant]
  4. CLONIDINE [Concomitant]
  5. DIGOXIN [Concomitant]
  6. LASIX                              /00032601/ [Concomitant]
  7. GLYBURIDE [Concomitant]
  8. JANUVIA [Concomitant]
  9. KLOR-CON [Concomitant]
  10. LANTUS [Concomitant]
  11. LISINOPRIL [Concomitant]
  12. LOSARTAN [Concomitant]
  13. LYRICA [Concomitant]
  14. METFORMIN [Concomitant]
  15. NORVASC [Concomitant]
  16. NOVOLOG [Concomitant]
  17. RANEXA [Concomitant]
  18. SIMVASTATIN [Concomitant]
  19. SOTALOL                            /00371502/ [Concomitant]
  20. SYNTHROID [Concomitant]
  21. WARFARIN [Concomitant]
  22. FUROSEMIDE [Concomitant]
     Dosage: UNK

REACTIONS (3)
  - Fluid retention [None]
  - Hospitalisation [Unknown]
  - Drug dose omission [Unknown]
